FAERS Safety Report 18437125 (Version 2)
Quarter: 2020Q4

REPORT INFORMATION
  Report Type: Spontaneous
  Country: US (occurrence: US)
  Receive Date: 20201028
  Receipt Date: 20201119
  Transmission Date: 20210114
  Serious: No
  Sender: FDA-Public Use
  Company Number: US-VERTEX PHARMACEUTICALS-2020-020857

PATIENT
  Age: 18 Year
  Sex: Male
  Weight: 42 kg

DRUGS (11)
  1. XOPENEX [Concomitant]
     Active Substance: LEVALBUTEROL HYDROCHLORIDE
  2. LANTUS [Concomitant]
     Active Substance: INSULIN GLARGINE
  3. PERTZYE [Concomitant]
     Active Substance: PANCRELIPASE AMYLASE\PANCRELIPASE LIPASE\PANCRELIPASE PROTEASE
  4. LAMOTRIGINE. [Concomitant]
     Active Substance: LAMOTRIGINE
  5. HUMALOG [Concomitant]
     Active Substance: INSULIN LISPRO
  6. TRIKAFTA [Suspect]
     Active Substance: ELEXACAFTOR\IVACAFTOR\TEZACAFTOR
     Indication: CYSTIC FIBROSIS
     Dosage: 2 TABLETS (100MG ELEXACAFTOR/50MG TEZACAFTOR/75MG IVACAFTOR) AM; 1 TABLET (150MG IVACAFTOR)PM
     Route: 048
     Dates: start: 201911
  7. FLOVENT [Concomitant]
     Active Substance: FLUTICASONE PROPIONATE
  8. PULMOZYME [Concomitant]
     Active Substance: DORNASE ALFA
  9. NASONEX [Concomitant]
     Active Substance: MOMETASONE FUROATE
     Dosage: UNK
  10. HYPERSAL [Concomitant]
     Active Substance: SODIUM CHLORIDE
  11. MIRALAX [Concomitant]
     Active Substance: POLYETHYLENE GLYCOL 3350

REACTIONS (1)
  - Otitis externa [Unknown]

NARRATIVE: CASE EVENT DATE: 20201017
